FAERS Safety Report 8586987-4 (Version None)
Quarter: 2012Q3

REPORT INFORMATION
  Report Type: 
  Country: None (occurrence: None)
  Receive Date: 20120810
  Receipt Date: 20120730
  Transmission Date: 20120928
  Serious: Yes (Hospitalization)
  Sender: FDA-Public Use
  Company Number: JP-BRISTOL-MYERS SQUIBB COMPANY-16817421

PATIENT
  Age: 5 Decade
  Sex: Male

DRUGS (4)
  1. DROXIDOPA [Suspect]
     Indication: ORTHOSTATIC HYPOTENSION
  2. CARBIDOPA + LEVODOPA [Suspect]
     Indication: PARKINSON'S DISEASE
     Dosage: 250MG/DAY
  3. PRAMIPEXOLE DIHYDROCHLORIDE [Suspect]
     Indication: PARKINSON'S DISEASE
  4. DROXIDOPA [Suspect]
     Indication: DIZZINESS

REACTIONS (1)
  - DOPAMINE DYSREGULATION SYNDROME [None]
